FAERS Safety Report 9105122 (Version 2)
Quarter: 2013Q1

REPORT INFORMATION
  Report Type: Report from Study
  Country: US (occurrence: US)
  Receive Date: 20130220
  Receipt Date: 20130306
  Transmission Date: 20140127
  Serious: No
  Sender: FDA-Public Use
  Company Number: US-VERTEX PHARMACEUTICALS INC.-2013-002299

PATIENT
  Age: 55 Year
  Sex: Female
  Weight: 65 kg

DRUGS (5)
  1. VX-950 (TELAPREVIR) [Suspect]
     Indication: HEPATITIS C
     Dosage: 750 MG, TID
     Route: 048
  2. PEGASYS [Suspect]
     Indication: HEPATITIS C
  3. RIBAPAK [Suspect]
     Indication: HEPATITIS C
     Dosage: 800 UNK, QD
  4. TYLENOL [Concomitant]
     Dosage: 325 MG, UNK
  5. MULTIVITAMIN [Concomitant]

REACTIONS (9)
  - Dyspnoea exertional [Unknown]
  - Influenza like illness [Unknown]
  - Insomnia [Unknown]
  - Weight decreased [Unknown]
  - Injection site erythema [Not Recovered/Not Resolved]
  - Fatigue [Unknown]
  - Rash [Unknown]
  - Anal pruritus [Unknown]
  - Dysgeusia [Unknown]
